FAERS Safety Report 6134990-6 (Version None)
Quarter: 2009Q1

REPORT INFORMATION
  Report Type: 
  Country: None (occurrence: None)
  Receive Date: 20090325
  Receipt Date: 20090308
  Transmission Date: 20090719
  Serious: Yes (Hospitalization, Other)
  Sender: FDA-Public Use
  Company Number: 2007S1002883

PATIENT
  Age: 63 Year
  Sex: Female
  Weight: 74.8435 kg

DRUGS (15)
  1. PHOSPHOSODA  FLAVOR NOT SPECIFIED [Suspect]
     Indication: COLONOSCOPY
     Dosage: 90 ML; TOTAL; PO
     Route: 048
     Dates: start: 20030420, end: 20030420
  2. HYTRIN [Concomitant]
  3. NORVASC [Concomitant]
  4. ACTONEL [Concomitant]
  5. CALCIUM [Concomitant]
  6. PREVACID [Concomitant]
  7. VITAMIN A [Concomitant]
  8. MIRALAX [Concomitant]
  9. IMDUR [Concomitant]
  10. FOLIC  ACID [Concomitant]
  11. ALPRAZOLAM [Concomitant]
  12. VITAMIN E  /00110501/ [Concomitant]
  13. ASPIRIN [Concomitant]
  14. INSULIN [Concomitant]
  15. COZAAR [Concomitant]

REACTIONS (9)
  - ANAEMIA [None]
  - ANXIETY [None]
  - DEPRESSION [None]
  - HYPOPHAGIA [None]
  - IMPAIRED WORK ABILITY [None]
  - INFLUENZA LIKE ILLNESS [None]
  - PAIN [None]
  - RENAL FAILURE ACUTE [None]
  - RENAL FAILURE CHRONIC [None]
